FAERS Safety Report 6485356-0 (Version None)
Quarter: 2009Q4

REPORT INFORMATION
  Report Type: 
  Country: None (occurrence: None)
  Receive Date: 20091203
  Receipt Date: 20091121
  Transmission Date: 20100525
  Serious: Yes (Hospitalization)
  Sender: FDA-Public Use
  Company Number: 2009AP004710

PATIENT
  Sex: Male

DRUGS (5)
  1. CITALOPRAM HYDROBROMIDE [Suspect]
  2. OXAZEPAM [Suspect]
  3. CYAMEMAZINE (CYAMEMAZINE) [Suspect]
  4. ALIMEMAZINE (ALIMEMAZINE) [Suspect]
  5. VALPROIC ACID [Suspect]

REACTIONS (9)
  - AFFECT LABILITY [None]
  - ATAXIA [None]
  - DECREASED APPETITE [None]
  - DRUG TOXICITY [None]
  - EXTENSOR PLANTAR RESPONSE [None]
  - HYPONATRAEMIA [None]
  - OSMOTIC DEMYELINATION SYNDROME [None]
  - POLYDIPSIA [None]
  - PSEUDOBULBAR PALSY [None]
